FAERS Safety Report 5303999-4 (Version None)
Quarter: 2007Q1

REPORT INFORMATION
  Report Type: 
  Country: None (occurrence: None)
  Receive Date: 20070201
  Receipt Date: 20061116
  Transmission Date: 20070707
  Serious: No
  Sender: FDA-Public Use
  Company Number: 2006PV025371

PATIENT
  Age: 64 Year
  Sex: Female
  Weight: 88.4514 kg

DRUGS (11)
  1. BYETTA [Suspect]
     Indication: DIABETES MELLITUS NON-INSULIN-DEPENDENT
     Dosage: 5 MCG;BID;SC
     Route: 058
     Dates: start: 20061115
  2. TENORMIN [Concomitant]
  3. ZESTRIL [Concomitant]
  4. PAXIL [Concomitant]
  5. PRILOSEC [Concomitant]
  6. HYDROCHLOROTHIAZIDE [Concomitant]
  7. POTASSIUM ACETATE [Concomitant]
  8. HYDROXYZINE HYDROCHLORIDE [Concomitant]
  9. GLIPIZIDE [Concomitant]
  10. METFORMIN HCL [Concomitant]
  11. .. [Concomitant]

REACTIONS (6)
  - HOT FLUSH [None]
  - NAUSEA [None]
  - OCULAR HYPERAEMIA [None]
  - SENSATION OF HEAVINESS [None]
  - TREMOR [None]
  - VOMITING [None]
